FAERS Safety Report 7973190-1 (Version None)
Quarter: 2011Q4

REPORT INFORMATION
  Report Type: 
  Country: None (occurrence: None)
  Receive Date: 20111122
  Receipt Date: 20110711
  Transmission Date: 20120403
  Serious: No
  Sender: FDA-Public Use
  Company Number: PHHY2011US51663

PATIENT
  Sex: Female

DRUGS (13)
  1. BACLOFEN [Concomitant]
  2. BUPROPION HCL [Concomitant]
  3. OMEPRAZOLE [Concomitant]
  4. GILENYA [Suspect]
     Indication: MULTIPLE SCLEROSIS
     Dosage: 0.5 MG, QD, ORAL
     Route: 048
     Dates: start: 20110415, end: 20110418
  5. ASACOL [Concomitant]
  6. HYDROCHLOROTHIAZIDE [Concomitant]
  7. CITALOPRAM HYDROBROMIDE [Concomitant]
  8. LEVOTHYROXINE SODIUM [Concomitant]
  9. LORAZEPAM [Concomitant]
  10. OXYCODONE HCL [Concomitant]
  11. GABAPENTIN [Concomitant]
  12. PROMETHAZINE [Concomitant]
  13. ATENOLOL [Concomitant]

REACTIONS (3)
  - DYSPNOEA [None]
  - DIZZINESS [None]
  - CHEST DISCOMFORT [None]
